FAERS Safety Report 4321044-4 (Version None)
Quarter: 2004Q1

REPORT INFORMATION
  Report Type: 
  Country: None (occurrence: None)
  Receive Date: 20040318
  Receipt Date: 20040315
  Transmission Date: 20041129
  Serious: Yes (Life-Threatening)
  Sender: FDA-Public Use
  Company Number: MAG-2004-0000244

PATIENT
  Sex: Female

DRUGS (5)
  1. POVIDONE IODINE [Suspect]
     Indication: SURGERY
     Dosage: 1 APPLIC, DAILY, TOPICAL
     Route: 061
     Dates: start: 20040113, end: 20040113
  2. FENTANYL CITRATE [Concomitant]
  3. DIPRIVAN [Concomitant]
  4. TRACRIUM [Concomitant]
  5. CEFUROXIME AXETIL [Concomitant]

REACTIONS (3)
  - ANAPHYLACTIC SHOCK [None]
  - BRADYCARDIA [None]
  - LABORATORY TEST ABNORMAL [None]
